FAERS Safety Report 4280480-5 (Version None)
Quarter: 2004Q1

REPORT INFORMATION
  Report Type: 
  Country: None (occurrence: None)
  Receive Date: 20040127
  Receipt Date: 20040114
  Transmission Date: 20041129
  Serious: Yes (Death, Other)
  Sender: FDA-Public Use
  Company Number: 2004002600

PATIENT
  Age: 62 Year
  Sex: Male

DRUGS (2)
  1. VORICONAZOLE (VORICONAZOLE) [Suspect]
     Indication: ALTERNARIA INFECTION
     Dates: start: 20030101, end: 20030101
  2. AMPHOTERICIN B [Concomitant]

REACTIONS (3)
  - ALTERNARIA INFECTION [None]
  - LIVER TRANSPLANT REJECTION [None]
  - SKIN ULCER [None]
